FAERS Safety Report 5452819-6 (Version None)
Quarter: 2007Q3

REPORT INFORMATION
  Report Type: 
  Country: None (occurrence: None)
  Receive Date: 20070914
  Receipt Date: 20070831
  Transmission Date: 20080115
  Serious: Yes (Death, Other)
  Sender: FDA-Public Use
  Company Number: BE-GENENTECH-247192

PATIENT
  Age: 67 Year
  Sex: Female
  Weight: 51 kg

DRUGS (2)
  1. OMALIZUMAB [Suspect]
     Indication: ASTHMA
     Dosage: 300 MG, UNK
  2. TELITHROMYCIN [Concomitant]
     Indication: ASTHMA
     Dosage: 800 MG, UNK

REACTIONS (7)
  - CARDIAC FAILURE [None]
  - MICROCYTIC ANAEMIA [None]
  - MYOCARDIAL INFARCTION [None]
  - PULMONARY OEDEMA [None]
  - SERUM SICKNESS [None]
  - THROMBOCYTHAEMIA [None]
  - UNEVALUABLE EVENT [None]
